FAERS Safety Report 18883832 (Version 3)
Quarter: 2021Q2

REPORT INFORMATION
  Report Type: Spontaneous
  Country: FR (occurrence: FR)
  Receive Date: 20210212
  Receipt Date: 20210504
  Transmission Date: 20210717
  Serious: Yes (Hospitalization, Other)
  Sender: FDA-Public Use
  Company Number: NVSC2021FR031235

PATIENT
  Age: 19 Year
  Sex: Female
  Weight: 70 kg

DRUGS (7)
  1. ENDOXAN [Suspect]
     Active Substance: CYCLOPHOSPHAMIDE
     Indication: PROPHYLAXIS AGAINST GRAFT VERSUS HOST DISEASE
     Dosage: UNK (POWDER FOR SOLUTION FOR INJECTION, 1 DAY)
     Route: 042
  2. CELLCEPT [Suspect]
     Active Substance: MYCOPHENOLATE MOFETIL\MYCOPHENOLATE MOFETIL HYDROCHLORIDE
     Dosage: UNK(IV INJECTION)
     Route: 042
  3. CELLCEPT [Suspect]
     Active Substance: MYCOPHENOLATE MOFETIL\MYCOPHENOLATE MOFETIL HYDROCHLORIDE
     Indication: PROPHYLAXIS AGAINST GRAFT VERSUS HOST DISEASE
     Dosage: UNK (1 DAY)
     Route: 065
  4. NEORAL [Suspect]
     Active Substance: CYCLOSPORINE
     Indication: PROPHYLAXIS AGAINST GRAFT VERSUS HOST DISEASE
     Dosage: UNK (1 DAY)
     Route: 048
  5. CELLCEPT [Suspect]
     Active Substance: MYCOPHENOLATE MOFETIL\MYCOPHENOLATE MOFETIL HYDROCHLORIDE
     Dosage: UNK
     Route: 048
  6. NEORAL [Suspect]
     Active Substance: CYCLOSPORINE
     Dosage: UNK
     Route: 042
  7. NEORAL [Suspect]
     Active Substance: CYCLOSPORINE
     Dosage: 75 MG, BID (2X/DAY)
     Route: 048

REACTIONS (10)
  - Haemorrhage urinary tract [Recovering/Resolving]
  - Acute graft versus host disease in skin [Unknown]
  - Pollakiuria [Unknown]
  - Cytomegalovirus infection [Unknown]
  - Dysuria [Unknown]
  - Cystitis haemorrhagic [Recovered/Resolved]
  - Urinary retention [Unknown]
  - BK virus infection [Unknown]
  - Bacteraemia [Unknown]
  - Hepatosplenic candidiasis [Unknown]

NARRATIVE: CASE EVENT DATE: 20200220
